FAERS Safety Report 6607809-4 (Version None)
Quarter: 2010Q1

REPORT INFORMATION
  Report Type: 
  Country: None (occurrence: None)
  Receive Date: 20100212
  Receipt Date: 20091103
  Transmission Date: 20100710
  Serious: No
  Sender: FDA-Public Use
  Company Number: 1000009873

PATIENT
  Age: 54 Year
  Sex: Female

DRUGS (11)
  1. SAVELLA [Suspect]
     Indication: FIBROMYALGIA
     Dosage: 12.5 MG (12.5 MG, 1 IN 1 D), ORAL, 25 MG (12.5 MG, 2 IN 1 D), ORAL, 50 MG (25 MG, 2 IN 1), ORAL
     Route: 048
     Dates: start: 20090926, end: 20090926
  2. SAVELLA [Suspect]
     Indication: FIBROMYALGIA
     Dosage: 12.5 MG (12.5 MG, 1 IN 1 D), ORAL, 25 MG (12.5 MG, 2 IN 1 D), ORAL, 50 MG (25 MG, 2 IN 1), ORAL
     Route: 048
     Dates: start: 20090927, end: 20090928
  3. SAVELLA [Suspect]
     Indication: FIBROMYALGIA
     Dosage: 12.5 MG (12.5 MG, 1 IN 1 D), ORAL, 25 MG (12.5 MG, 2 IN 1 D), ORAL, 50 MG (25 MG, 2 IN 1), ORAL
     Route: 048
     Dates: start: 20090929, end: 20091002
  4. SAVELLA [Suspect]
     Indication: FIBROMYALGIA
     Dosage: 100 MG (50 MG, 2 IN 1 D), ORAL
     Route: 048
     Dates: start: 20091003, end: 20091007
  5. PREMARIN [Concomitant]
  6. VITAMIN C [Concomitant]
  7. ASPIRIN [Concomitant]
  8. FOLATE [Concomitant]
  9. VITAMIN B-12 [Concomitant]
  10. IBUPROFEN [Concomitant]
  11. TYLENOL-500 [Concomitant]

REACTIONS (4)
  - DIZZINESS [None]
  - FEELING ABNORMAL [None]
  - NAUSEA [None]
  - TREMOR [None]
